FAERS Safety Report 8192171-9 (Version None)
Quarter: 2012Q1

REPORT INFORMATION
  Report Type: 
  Country: None (occurrence: None)
  Receive Date: 20120307
  Receipt Date: 20120302
  Transmission Date: 20120608
  Serious: Yes (Hospitalization)
  Sender: FDA-Public Use
  Company Number: JP-PFIZER INC-2012055970

PATIENT
  Sex: Female

DRUGS (1)
  1. ZITHROMAX [Suspect]
     Dosage: 2 G, SINGLE

REACTIONS (3)
  - CONVULSION [None]
  - ABDOMINAL PAIN [None]
  - HAEMATOCHEZIA [None]
